FAERS Safety Report 9096364 (Version 1)
Quarter: 2013Q1

REPORT INFORMATION
  Report Type: Spontaneous
  Country: US (occurrence: US)
  Receive Date: 20130207
  Receipt Date: 20130207
  Transmission Date: 20140127
  Serious: No
  Sender: FDA-Public Use
  Company Number: US-VERTEX PHARMACEUTICALS INC.-2013-000899

PATIENT
  Age: 53 Year
  Sex: Male
  Weight: 77 kg

DRUGS (7)
  1. INCIVEK [Suspect]
     Indication: HEPATITIS C
     Dosage: 750 MG, TID
     Route: 048
     Dates: start: 20130118
  2. RIBAVIRIN [Suspect]
     Indication: HEPATITIS C
     Dosage: 400 MG IN AM, 600 MG IN PM
     Dates: start: 20130118
  3. PROCLICK [Suspect]
     Indication: HEPATITIS C
     Dosage: 180 ?G, QW
     Route: 058
     Dates: start: 20130118
  4. LORATADINE [Concomitant]
     Indication: PROPHYLAXIS
     Dosage: 10 MG, QD
     Route: 048
     Dates: start: 20121219
  5. OXYCODONE [Concomitant]
     Indication: PAIN MANAGEMENT
     Dosage: 30 MG, QD
     Route: 048
     Dates: start: 201212
  6. AMITRIPTYLINE [Concomitant]
     Dosage: 10 MG, QD
     Route: 048
     Dates: start: 201212
  7. DIAZEPAM [Concomitant]
     Indication: PAIN
     Dosage: 10 MG, PRN

REACTIONS (2)
  - Rash generalised [Not Recovered/Not Resolved]
  - Pruritus [Not Recovered/Not Resolved]
